FAERS Safety Report 25229395 (Version 1)
Quarter: 2025Q2

REPORT INFORMATION
  Report Type: Spontaneous
  Country: CA (occurrence: CA)
  Receive Date: 20250423
  Receipt Date: 20250423
  Transmission Date: 20250717
  Serious: Yes (Other)
  Sender: SANDOZ
  Company Number: CA-SANDOZ-SDZ2023CA029647

PATIENT
  Age: 70 Year
  Sex: Male
  Weight: 111.58 kg

DRUGS (1)
  1. METFORMIN HYDROCHLORIDE\SITAGLIPTIN HYDROCHLORIDE [Suspect]
     Active Substance: METFORMIN HYDROCHLORIDE\SITAGLIPTIN HYDROCHLORIDE
     Indication: Diabetes mellitus
     Dosage: 1 MG 4 DOSE EVERY N/A N/A
     Route: 048
     Dates: start: 20230623, end: 20230730

REACTIONS (1)
  - Diarrhoea [Recovering/Resolving]

NARRATIVE: CASE EVENT DATE: 20230626
